FAERS Safety Report 9690703 (Version 2)
Quarter: 2013Q4

REPORT INFORMATION
  Report Type: Report from Study
  Country: US (occurrence: US)
  Receive Date: 20131115
  Receipt Date: 20131206
  Transmission Date: 20140711
  Serious: Yes (Other)
  Sender: FDA-Public Use
  Company Number: US-ROCHE-1303431

PATIENT
  Sex: 0

DRUGS (4)
  1. RITUXIMAB [Suspect]
     Indication: DIFFUSE LARGE B-CELL LYMPHOMA
     Route: 042
  2. RITUXIMAB [Suspect]
     Indication: MANTLE CELL LYMPHOMA
  3. VINCRISTINE SULFATE [Suspect]
     Indication: DIFFUSE LARGE B-CELL LYMPHOMA
     Dosage: DRUG: VINCRISTINE SULFATE LIPOSOME INJECTION (VSLI; MARQIBO), WITHOUT A DOSE CAP, AS A 1-HOUR INFUSI
     Route: 065
  4. VINCRISTINE SULFATE [Suspect]
     Indication: MANTLE CELL LYMPHOMA

REACTIONS (15)
  - Metabolic disorder [Unknown]
  - Fall [Unknown]
  - Constipation [Unknown]
  - Paraesthesia [Unknown]
  - Peripheral motor neuropathy [Unknown]
  - Neuropathy peripheral [Unknown]
  - Asthenia [Unknown]
  - Abdominal pain [Unknown]
  - Febrile neutropenia [Unknown]
  - Lymphopenia [Unknown]
  - Fatigue [Unknown]
  - Infection [Unknown]
  - Platelet count decreased [Unknown]
  - Leukopenia [Unknown]
  - Neutropenia [Unknown]
